FAERS Safety Report 22013645 (Version 1)
Quarter: 2023Q1

REPORT INFORMATION
  Report Type: Report from Study
  Country: IT (occurrence: IT)
  Receive Date: 20230220
  Receipt Date: 20230220
  Transmission Date: 20230418
  Serious: Yes (Other)
  Sender: FDA-Public Use
  Company Number: IT-JNJFOC-20230231007

PATIENT

DRUGS (1)
  1. REMICADE [Suspect]
     Active Substance: INFLIXIMAB
     Indication: Colitis ulcerative
     Route: 041

REACTIONS (6)
  - Tuberculosis gastrointestinal [Unknown]
  - Skin reaction [Unknown]
  - Palpitations [Unknown]
  - Psoriasis [Unknown]
  - Myalgia [Unknown]
  - Drug ineffective [Unknown]
